FAERS Safety Report 4301126-3 (Version None)
Quarter: 2004Q1

REPORT INFORMATION
  Report Type: 
  Country: None (occurrence: None)
  Receive Date: 20040219
  Receipt Date: 20040213
  Transmission Date: 20041129
  Serious: Yes (Hospitalization)
  Sender: FDA-Public Use
  Company Number: RB-507-2004

PATIENT
  Age: 4 Day
  Sex: Female

DRUGS (1)
  1. BUPRENORPHINE HYDROCHLORIDE [Suspect]
     Dosage: SEE IMAGE
     Dates: start: 19970415

REACTIONS (3)
  - CAESAREAN SECTION [None]
  - DRUG WITHDRAWAL SYNDROME NEONATAL [None]
  - MATERNAL DRUGS AFFECTING FOETUS [None]
